FAERS Safety Report 4804801-7 (Version None)
Quarter: 2005Q4

REPORT INFORMATION
  Report Type: 
  Country: None (occurrence: None)
  Receive Date: 20051020
  Receipt Date: 20051014
  Transmission Date: 20060501
  Serious: Yes (Hospitalization)
  Sender: FDA-Public Use
  Company Number: PHBS2005US15163

PATIENT
  Sex: Male

DRUGS (2)
  1. LIORESAL [Suspect]
     Indication: MUSCLE SPASTICITY
     Route: 037
  2. BACLOFEN [Suspect]
     Indication: INCORRECT DOSE ADMINISTERED
     Route: 048

REACTIONS (3)
  - HEADACHE [None]
  - OVERDOSE [None]
  - SUICIDE ATTEMPT [None]
